FAERS Safety Report 8082545-9 (Version None)
Quarter: 2012Q1

REPORT INFORMATION
  Report Type: 
  Country: None (occurrence: None)
  Receive Date: 20120127
  Receipt Date: 20110218
  Transmission Date: 20120608
  Serious: No
  Sender: FDA-Public Use
  Company Number: US-ABBOTT-11P-163-0706733-00

PATIENT
  Sex: Female

DRUGS (1)
  1. HUMIRA [Suspect]
     Indication: SPONDYLOARTHROPATHY
     Route: 058
     Dates: start: 20101101

REACTIONS (5)
  - MUSCULOSKELETAL PAIN [None]
  - CHILLS [None]
  - PAIN IN EXTREMITY [None]
  - NECK PAIN [None]
  - NAUSEA [None]
